FAERS Safety Report 20539699 (Version 1)
Quarter: 2022Q1

REPORT INFORMATION
  Report Type: Spontaneous
  Country: CN (occurrence: CN)
  Receive Date: 20220302
  Receipt Date: 20220302
  Transmission Date: 20220423
  Serious: Yes (Other)
  Sender: FDA-Public Use
  Company Number: CN-BAYER-2021A244068

PATIENT
  Age: 79 Year
  Sex: Female
  Weight: 60 kg

DRUGS (11)
  1. XARELTO [Suspect]
     Active Substance: RIVAROXABAN
     Indication: Anticoagulant therapy
     Dosage: 10 MG, QD
     Route: 048
     Dates: start: 20191029, end: 20191031
  2. METOPROLOL [Concomitant]
     Active Substance: METOPROLOL
     Indication: Cardiomyopathy
     Dosage: 12.5 MG, BID
     Route: 048
     Dates: start: 20191029
  3. METOPROLOL [Concomitant]
     Active Substance: METOPROLOL
     Indication: Accelerated idioventricular rhythm
  4. METOPROLOL [Concomitant]
     Active Substance: METOPROLOL
     Indication: Blood pressure management
  5. ROSUVASTATIN [Concomitant]
     Active Substance: ROSUVASTATIN
     Indication: Lipids abnormal
     Dosage: 20 MG, QD
     Route: 048
     Dates: start: 20191029
  6. ROSUVASTATIN [Concomitant]
     Active Substance: ROSUVASTATIN
     Indication: Plaque shift
  7. METOPROLOL [Concomitant]
     Active Substance: METOPROLOL
     Indication: Cardiomyopathy
     Dosage: 12.5 MG, BID
     Route: 048
     Dates: start: 20191029
  8. METOPROLOL [Concomitant]
     Active Substance: METOPROLOL
     Indication: Accelerated idioventricular rhythm
  9. METOPROLOL [Concomitant]
     Active Substance: METOPROLOL
     Indication: Blood pressure management
  10. ROSUVASTATIN [Concomitant]
     Active Substance: ROSUVASTATIN
     Indication: Lipids abnormal
     Dosage: 20 MG, QD
     Route: 048
     Dates: start: 20191029
  11. ROSUVASTATIN [Concomitant]
     Active Substance: ROSUVASTATIN
     Indication: Plaque shift

REACTIONS (4)
  - Coagulopathy [Recovered/Resolved]
  - Pulmonary embolism [Unknown]
  - Underdose [Unknown]
  - Prescribed underdose [Unknown]

NARRATIVE: CASE EVENT DATE: 20191029
